FAERS Safety Report 12904024 (Version 1)
Quarter: 2016Q4

REPORT INFORMATION
  Report Type: Spontaneous
  Country: FR (occurrence: FR)
  Receive Date: 20161102
  Receipt Date: 20161102
  Transmission Date: 20170207
  Serious: Yes (Hospitalization)
  Sender: FDA-Public Use
  Company Number: PHHY2016FR149421

PATIENT
  Age: 39 Year
  Sex: Female

DRUGS (3)
  1. TRAMADOL HYDROCHLORIDE. [Suspect]
     Active Substance: TRAMADOL HYDROCHLORIDE
     Indication: PAIN
     Dosage: UNK
     Route: 065
     Dates: end: 20160317
  2. SERESTA [Suspect]
     Active Substance: OXAZEPAM
     Indication: ANXIETY
     Dosage: UNK
     Route: 065
     Dates: end: 20160317
  3. BACLOFEN. [Suspect]
     Active Substance: BACLOFEN
     Indication: ALCOHOL ABUSE
     Dosage: 30 MG, QD
     Route: 065
     Dates: start: 2016, end: 20160317

REACTIONS (3)
  - Encephalopathy [Recovering/Resolving]
  - Hepatocellular injury [Recovering/Resolving]
  - Acute kidney injury [Recovering/Resolving]

NARRATIVE: CASE EVENT DATE: 20160317
